FAERS Safety Report 12614865 (Version 1)
Quarter: 2016Q3

REPORT INFORMATION
  Report Type: Spontaneous
  Country: US (occurrence: US)
  Receive Date: 20160802
  Receipt Date: 20160802
  Transmission Date: 20161109
  Serious: No
  Sender: FDA-Public Use
  Company Number: US-GLAXOSMITHKLINE-US2016GSK103983

PATIENT
  Sex: Male

DRUGS (2)
  1. ARNUITY ELLIPTA [Suspect]
     Active Substance: FLUTICASONE FUROATE
     Indication: ASTHMA
     Dosage: UNK UNK, QD
  2. ARNUITY ELLIPTA [Suspect]
     Active Substance: FLUTICASONE FUROATE
     Dosage: UNK UNK, BID

REACTIONS (3)
  - Inappropriate schedule of drug administration [Unknown]
  - Intentional product misuse [Unknown]
  - Extra dose administered [Unknown]
